FAERS Safety Report 8499502-0 (Version None)
Quarter: 2012Q2

REPORT INFORMATION
  Report Type: 
  Country: None (occurrence: None)
  Receive Date: 20120629
  Receipt Date: 20120613
  Transmission Date: 20120825
  Serious: Yes (Hospitalization, Other)
  Sender: FDA-Public Use
  Company Number: MCA-N-12-069

PATIENT
  Age: 86 Year
  Sex: Male

DRUGS (8)
  1. TORSEMIDE [Concomitant]
  2. LEVOFLOXACIN [Suspect]
     Indication: PNEUMONIA
     Dosage: 500 MG, QD, IV AND ORAL
     Route: 042
  3. GABAPENTIN [Concomitant]
  4. PREGABALIN [Concomitant]
  5. BRONCHODILATORS [Concomitant]
  6. ALLOPURINOL [Concomitant]
  7. ALPRAZOLAM [Concomitant]
  8. OMEPRAZOLE [Concomitant]

REACTIONS (9)
  - PALLOR [None]
  - CONTUSION [None]
  - RENAL FAILURE [None]
  - MELAENA [None]
  - PETECHIAE [None]
  - ANAEMIA MACROCYTIC [None]
  - ABDOMINAL PAIN [None]
  - THROMBOCYTOPENIA [None]
  - PURPURA [None]
